FAERS Safety Report 9162891 (Version 1)
Quarter: 2013Q1

REPORT INFORMATION
  Report Type: Spontaneous
  Country: TW (occurrence: None)
  Receive Date: 20130225
  Receipt Date: 20130225
  Transmission Date: 20140127
  Serious: Yes (Hospitalization)
  Sender: FDA-Public Use
  Company Number: 2013SUN00151

PATIENT
  Age: 76 Year
  Sex: Male

DRUGS (5)
  1. CLOPIDOGREL BISULFATE [Suspect]
  2. TICLOPIDINE [Suspect]
  3. HEPARIN (HEPARIN) [Suspect]
  4. DALTEPARIN SODIUM (DALTEPARIN SODIUM) UNKNOWN [Suspect]
     Dosage: 2500 UNITS EVERY 12 HOURS, SUBCUTANEOUS
  5. NITROGLYCERIN (NITROGLYCERIN) [Concomitant]

REACTIONS (7)
  - Abdominal compartment syndrome [None]
  - Haemothorax [None]
  - Retroperitoneal haematoma [None]
  - Respiratory acidosis [None]
  - Pleural effusion [None]
  - Ascites [None]
  - Haemorrhage [None]
